FAERS Safety Report 18124939 (Version 2)
Quarter: 2020Q3

REPORT INFORMATION
  Report Type: Spontaneous
  Country: US (occurrence: US)
  Receive Date: 20200807
  Receipt Date: 20200827
  Transmission Date: 20201103
  Serious: Yes (Other)
  Sender: FDA-Public Use
  Company Number: US-GILEAD-2020-0489154

PATIENT
  Age: 57 Year
  Sex: Male
  Weight: 184 kg

DRUGS (2)
  1. REMDESIVIR. [Suspect]
     Active Substance: REMDESIVIR
     Indication: COVID-19
     Dosage: 200 MG, ONCE
     Route: 042
     Dates: start: 20200802, end: 20200803
  2. ACTEMRA [Concomitant]
     Active Substance: TOCILIZUMAB

REACTIONS (1)
  - Liver function test increased [Unknown]

NARRATIVE: CASE EVENT DATE: 20200802
